FAERS Safety Report 10335079 (Version 1)
Quarter: 2014Q3

REPORT INFORMATION
  Report Type: Spontaneous
  Country: US (occurrence: US)
  Receive Date: 20140723
  Receipt Date: 20140723
  Transmission Date: 20150326
  Serious: No
  Sender: FDA-Public Use
  Company Number: US-UNITED THERAPEUTICS-UTC-047757

PATIENT
  Age: 39 Year
  Sex: Female
  Weight: 53.52 kg

DRUGS (3)
  1. REMODULIN [Suspect]
     Active Substance: TREPROSTINIL
     Route: 058
     Dates: start: 20140404
  2. LETAIRIS [Concomitant]
     Active Substance: AMBRISENTAN
  3. REVATIO [Concomitant]
     Active Substance: SILDENAFIL CITRATE

REACTIONS (3)
  - Nausea [Unknown]
  - Accidental overdose [Unknown]
  - Muscular weakness [Unknown]

NARRATIVE: CASE EVENT DATE: 20140416
